FAERS Safety Report 5095381-2 (Version None)
Quarter: 2006Q3

REPORT INFORMATION
  Report Type: 
  Country: None (occurrence: None)
  Receive Date: 20060901
  Receipt Date: 20060825
  Transmission Date: 20061208
  Serious: Yes (Hospitalization)
  Sender: FDA-Public Use
  Company Number: 2006UW16838

PATIENT
  Age: 17684 Day
  Sex: Female

DRUGS (3)
  1. TENORETIC 100 [Suspect]
     Indication: HYPERTENSION
     Dosage: 50/25
     Route: 048
  2. FIORICET [Concomitant]
     Indication: HEADACHE
  3. ASPIRIN [Concomitant]
     Route: 048

REACTIONS (3)
  - CHEST PAIN [None]
  - DIZZINESS [None]
  - HYPERHIDROSIS [None]
